FAERS Safety Report 12857324 (Version 2)
Quarter: 2016Q4

REPORT INFORMATION
  Report Type: Report from Study
  Country: KR (occurrence: KR)
  Receive Date: 20161018
  Receipt Date: 20161026
  Transmission Date: 20170207
  Serious: Yes (Hospitalization, Other)
  Sender: FDA-Public Use
  Company Number: KR-GLAXOSMITHKLINE-KR2016GSK148810

PATIENT
  Age: 64 Year
  Sex: Female
  Weight: 62 kg

DRUGS (14)
  1. FLUTICASONE FUROATE + VILANTEROL TRIFENATATE [Suspect]
     Active Substance: FLUTICASONE FUROATE\VILANTEROL TRIFENATATE
     Dosage: 25 MG, UNK
     Dates: start: 20160921
  2. NORMAL SALINE [Concomitant]
     Active Substance: SODIUM CHLORIDE
     Indication: PNEUMONIA
     Dosage: 500 ML, UNK
     Route: 042
     Dates: start: 20160914, end: 20160914
  3. LACIDOFIL [Concomitant]
     Active Substance: LACTOBACILLUS ACIDOPHILUS\LACTOBACILLUS RHAMNOSUS
     Indication: OSTEOPOROSIS PROPHYLAXIS
     Dosage: 20 MG, BID
     Route: 048
     Dates: start: 20160912, end: 20160921
  4. ZITHROMAX [Concomitant]
     Active Substance: AZITHROMYCIN DIHYDRATE
     Indication: PNEUMONIA
     Dosage: 500 MG, UNK
     Route: 048
     Dates: start: 20160912, end: 20160914
  5. FLUTICASONE FUROATE + VILANTEROL TRIFENATATE [Suspect]
     Active Substance: FLUTICASONE FUROATE\VILANTEROL TRIFENATATE
     Indication: ASTHMA
     Dosage: 25 MG, UNK
     Route: 055
     Dates: start: 20160705, end: 20160912
  6. COUGH SYRUP [Concomitant]
     Active Substance: DEXTROMETHORPHAN HYDROBROMIDE\GUAIFENESIN
     Indication: PNEUMONIA
     Dosage: UNK
     Route: 048
     Dates: start: 20160912, end: 20160921
  7. NORMAL SALINE [Concomitant]
     Active Substance: SODIUM CHLORIDE
     Dosage: 1000 UNK, UNK
     Route: 042
     Dates: start: 20160912, end: 20160913
  8. SERETIDE [Concomitant]
     Active Substance: FLUTICASONE PROPIONATE\SALMETEROL XINAFOATE
     Indication: ASTHMA
     Dosage: UNK
     Route: 055
     Dates: start: 20160912, end: 20160920
  9. ERDOS [Concomitant]
     Indication: PNEUMONIA
     Dosage: 300 MG, BID
     Route: 048
     Dates: start: 20160912, end: 20160921
  10. JOINS [Concomitant]
     Indication: OSTEOARTHRITIS
     Dosage: 200 MG, UNK
     Route: 048
     Dates: start: 20160510
  11. SYNATURA SYRUP [Concomitant]
     Indication: PNEUMONIA
     Dosage: 15 ML, UNK
     Route: 048
     Dates: start: 20160912, end: 20160921
  12. ATROVENT [Concomitant]
     Active Substance: IPRATROPIUM BROMIDE
     Indication: PNEUMONIA
     Dosage: 250 UG, UNK
     Route: 055
  13. CALTEO-40 [Concomitant]
     Dosage: UNK
     Route: 048
     Dates: start: 20160216
  14. VENTOLIN [Concomitant]
     Active Substance: ALBUTEROL SULFATE
     Indication: PNEUMONIA
     Dosage: 1.25 MG, UNK
     Route: 055
     Dates: start: 20160912, end: 20160912

REACTIONS (2)
  - Pneumonia [Recovered/Resolved]
  - Abdominal pain [Recovered/Resolved]

NARRATIVE: CASE EVENT DATE: 20160907
